FAERS Safety Report 23226627 (Version 1)
Quarter: 2023Q4

REPORT INFORMATION
  Report Type: Spontaneous
  Country: US (occurrence: US)
  Receive Date: 20231124
  Receipt Date: 20231124
  Transmission Date: 20240109
  Serious: Yes (Other)
  Sender: FDA-Public Use
  Company Number: US-BRISTOL-MYERS SQUIBB COMPANY-2023-169260

PATIENT
  Age: 87 Year
  Sex: Male
  Weight: 63.5 kg

DRUGS (1)
  1. REVLIMID [Suspect]
     Active Substance: LENALIDOMIDE
     Indication: Chronic lymphocytic leukaemia
     Dosage: 21D ON 7D OFF
     Route: 048
     Dates: start: 20230701

REACTIONS (4)
  - Sepsis [Unknown]
  - Pneumonia [Unknown]
  - Infection [Unknown]
  - Off label use [Unknown]
